FAERS Safety Report 4950533-4 (Version None)
Quarter: 2006Q1

REPORT INFORMATION
  Report Type: 
  Country: None (occurrence: None)
  Receive Date: 20060316
  Receipt Date: 20060310
  Transmission Date: 20060701
  Serious: Yes (Other)
  Sender: FDA-Public Use
  Company Number: NO-2006-005511

PATIENT
  Sex: Female

DRUGS (1)
  1. LEVONORGESTREL [Suspect]
     Dosage: 20 UG/DAY,CONT, INTRA-UTERINE
     Route: 015

REACTIONS (1)
  - ENDOMETRIAL CANCER [None]
